FAERS Safety Report 9672187 (Version 1)
Quarter: 2013Q4

REPORT INFORMATION
  Report Type: Spontaneous
  Country: US (occurrence: US)
  Receive Date: 20131106
  Receipt Date: 20131106
  Transmission Date: 20140711
  Serious: No
  Sender: FDA-Public Use
  Company Number: US-ENDO PHARMACEUTICALS INC.-HCDA20120094

PATIENT
  Age: 63 Year
  Sex: Female
  Weight: 73.09 kg

DRUGS (2)
  1. HYDROCODONE/ACETAMINOPHEN 10MG/500MG [Suspect]
     Indication: BACK DISORDER
     Dosage: 30/1500 MG
     Route: 048
     Dates: start: 20120929
  2. HYDROCODONE/ACETAMINOPHEN [Concomitant]
     Indication: BACK DISORDER
     Dosage: UNKNOWN
     Route: 065
     Dates: end: 20120928

REACTIONS (3)
  - Diarrhoea [Not Recovered/Not Resolved]
  - Migraine [Not Recovered/Not Resolved]
  - Nausea [Not Recovered/Not Resolved]
